FAERS Safety Report 15861227 (Version 3)
Quarter: 2020Q1

REPORT INFORMATION
  Report Type: Spontaneous
  Country: ES (occurrence: ES)
  Receive Date: 20190124
  Receipt Date: 20200308
  Transmission Date: 20200409
  Serious: Yes (Other)
  Sender: FDA-Public Use
  Company Number: ES-ZYDUS-032668

PATIENT
  Age: 34 Year
  Sex: Male

DRUGS (12)
  1. METAMIZOLE SODIUM [Concomitant]
     Active Substance: METAMIZOLE SODIUM
     Indication: ANALGESIC THERAPY
     Route: 065
  2. PARACETAMOL [Concomitant]
     Active Substance: ACETAMINOPHEN
     Indication: ANALGESIC THERAPY
     Route: 065
  3. TRAZODONA HIDROCLORURO [Interacting]
     Active Substance: TRAZODONE HYDROCHLORIDE
     Indication: DEPRESSION
     Dosage: 100 MILLIGRAM, QD
     Route: 048
  4. PAROXETINE. [Suspect]
     Active Substance: PAROXETINE
     Indication: DEPRESSION
     Dosage: 40 MG, QD
     Route: 048
  5. ENALAPRIL [Concomitant]
     Active Substance: ENALAPRIL
     Indication: HYPERTENSION
     Dosage: 10 MG, QD
     Route: 048
     Dates: end: 20170127
  6. AMITRIPTYLINE/AMITRIPTYLINE HYDROCHLORIDE/AMITRIPTYLINE PAMOATE/AMITRIPTYLINOXIDE [Interacting]
     Active Substance: AMITRIPTYLINE
     Indication: DEPRESSION
     Route: 065
  7. ENALAPRIL [Concomitant]
     Active Substance: ENALAPRIL
     Indication: HYPERTENSION
     Route: 048
  8. SIVEXTRO [Interacting]
     Active Substance: TEDIZOLID PHOSPHATE
     Indication: DEVICE RELATED INFECTION
     Dosage: 200 MG FILM-COATED TABLETS 6 TABLETS
     Route: 048
     Dates: start: 20170123, end: 20170127
  9. AMITRIPTYLINE HYDROCHLORIDE/PERPHENAZINE [Interacting]
     Active Substance: AMITRIPTYLINE HYDROCHLORIDE\PERPHENAZINE
     Indication: DEPRESSION
     Dosage: 25 MG CAPSULAS DURAS , 30 CAPSULAS
     Route: 048
  10. VANCOMYCIN [Concomitant]
     Active Substance: VANCOMYCIN
     Indication: STAPHYLOCOCCAL INFECTION
     Route: 065
  11. FENTANYL TRANSDERMAL SYSTEM [Interacting]
     Active Substance: FENTANYL
     Indication: ANALGESIC THERAPY
     Dosage: 75 MICROGRAMOS/H PARCHES TRANSDERMICOS EFG, 5
     Route: 062
     Dates: start: 20161226
  12. FENTANYL TRANSDERMAL SYSTEM [Interacting]
     Active Substance: FENTANYL
     Indication: PAIN
     Dosage: 75 MICROGRAMOS/H PARCHES TRANSDERMICOS EFG, 5
     Route: 062
     Dates: start: 20161226

REACTIONS (3)
  - Serotonin syndrome [Unknown]
  - Drug interaction [Unknown]
  - Hypertensive crisis [Recovered/Resolved]

NARRATIVE: CASE EVENT DATE: 20170127
